FAERS Safety Report 16516935 (Version 1)
Quarter: 2019Q3

REPORT INFORMATION
  Report Type: Spontaneous
  Country: US (occurrence: US)
  Receive Date: 20190702
  Receipt Date: 20190702
  Transmission Date: 20191004
  Serious: No
  Sender: FDA-Public Use
  Company Number: US-GALDERMA-US19002399

PATIENT
  Age: 29 Year
  Sex: Female

DRUGS (4)
  1. PROACTIV REPAIRING TREATMENT [Concomitant]
     Active Substance: BENZOYL PEROXIDE
     Route: 061
     Dates: start: 20180324, end: 201808
  2. PROACTIV MD ADAPALENE ACNE TREATMENT [Suspect]
     Active Substance: ADAPALENE
     Indication: PRODUCT USED FOR UNKNOWN INDICATION
     Dosage: 0.1%
     Route: 061
     Dates: start: 20180324, end: 201808
  3. PROACTIV REVITALIZING TONER [Concomitant]
     Active Substance: COSMETICS
     Route: 061
     Dates: start: 20180324, end: 201808
  4. ANTIBIOTICS [Concomitant]
     Active Substance: UNSPECIFIED INGREDIENT

REACTIONS (5)
  - Skin irritation [Recovered/Resolved]
  - Dry skin [Recovered/Resolved]
  - Erythema [Recovered/Resolved]
  - Inappropriate schedule of product administration [Recovered/Resolved]
  - Underdose [Recovered/Resolved]

NARRATIVE: CASE EVENT DATE: 201803
